FAERS Safety Report 16954776 (Version 1)
Quarter: 2019Q4

REPORT INFORMATION
  Report Type: Spontaneous
  Country: US (occurrence: US)
  Receive Date: 20191024
  Receipt Date: 20191024
  Transmission Date: 20200122
  Serious: Yes (Other)
  Sender: FDA-Public Use
  Company Number: US-JNJFOC-20191020622

PATIENT
  Sex: Female

DRUGS (2)
  1. LIDOCAINE. [Concomitant]
     Active Substance: LIDOCAINE
     Indication: PRODUCT USED FOR UNKNOWN INDICATION
     Dosage: PATIENT WAS USING CREAM ON BACK
     Route: 061
  2. TYLENOL [Suspect]
     Active Substance: ACETAMINOPHEN
     Indication: PRODUCT USED FOR UNKNOWN INDICATION
     Dosage: EVERY 6 HOURS, FORMULATION: GEL
     Route: 065
     Dates: start: 2018

REACTIONS (3)
  - Muscular weakness [Not Recovered/Not Resolved]
  - Pain [Not Recovered/Not Resolved]
  - Suicidal ideation [Not Recovered/Not Resolved]
